FAERS Safety Report 12103656 (Version 1)
Quarter: 2016Q1

REPORT INFORMATION
  Report Type: Other
  Country: US (occurrence: US)
  Receive Date: 20160222
  Receipt Date: 20160222
  Transmission Date: 20160526
  Serious: No
  Sender: FDA-Public Use
  Company Number: US-ACORDA-ACO_113328_2015

PATIENT
  Sex: Female

DRUGS (1)
  1. AMPYRA [Suspect]
     Active Substance: DALFAMPRIDINE
     Indication: PRODUCT USED FOR UNKNOWN INDICATION
     Dosage: 10 MG, BID
     Route: 048

REACTIONS (11)
  - Injection site mass [Unknown]
  - Feeling jittery [Unknown]
  - Pyrexia [Unknown]
  - Anaemia [Unknown]
  - Muscle spasms [Unknown]
  - Sinusitis [Unknown]
  - Drug effect incomplete [Unknown]
  - Heart rate increased [Unknown]
  - Osteoporosis [Unknown]
  - Blood potassium decreased [Unknown]
  - Injection site erosion [Unknown]
